FAERS Safety Report 25880176 (Version 4)
Quarter: 2025Q4

REPORT INFORMATION
  Report Type: Spontaneous
  Country: US (occurrence: US)
  Receive Date: 20251004
  Receipt Date: 20251106
  Transmission Date: 20260119
  Serious: No
  Sender: SANOFI AVENTIS
  Company Number: US-SANOFI-02674654

PATIENT
  Age: 67 Year
  Sex: Female

DRUGS (1)
  1. LANTUS SOLOSTAR [Suspect]
     Active Substance: INSULIN GLARGINE
     Indication: Type 2 diabetes mellitus
     Dosage: 20 IU, QD
     Route: 065

REACTIONS (3)
  - Injection site bruising [Unknown]
  - Device use issue [Unknown]
  - Product storage error [Unknown]
